FAERS Safety Report 9869333 (Version 2)
Quarter: 2014Q1

REPORT INFORMATION
  Report Type: Spontaneous
  Country: JP (occurrence: JP)
  Receive Date: 20140205
  Receipt Date: 20140307
  Transmission Date: 20141002
  Serious: No
  Sender: FDA-Public Use
  Company Number: JP-JNJFOC-20140118169

PATIENT
  Age: 4 Decade
  Sex: Male

DRUGS (5)
  1. INVEGA [Suspect]
     Indication: SCHIZOPHRENIA
     Route: 048
     Dates: start: 201303
  2. TEGRETOL [Suspect]
     Indication: ANXIETY
     Route: 048
     Dates: start: 201310
  3. TEGRETOL [Suspect]
     Indication: IRRITABILITY
     Route: 048
     Dates: start: 201310
  4. SEROQUEL [Concomitant]
     Indication: INSOMNIA
     Route: 048
  5. DEPAKENE-R [Concomitant]
     Route: 048
     Dates: end: 201310

REACTIONS (1)
  - Urticaria [Unknown]
